FAERS Safety Report 5650659-6 (Version None)
Quarter: 2008Q1

REPORT INFORMATION
  Report Type: 
  Country: None (occurrence: None)
  Receive Date: 20080305
  Receipt Date: 20080225
  Transmission Date: 20080703
  Serious: Yes (Hospitalization, Disabling, Other)
  Sender: FDA-Public Use
  Company Number: PHHO2006ES15708

PATIENT
  Age: 53 Year
  Sex: Male

DRUGS (3)
  1. URBASON [Suspect]
     Indication: RENAL TRANSPLANT
  2. CERTICAN [Suspect]
     Indication: RENAL TRANSPLANT
     Dosage: 1.25 MG, BID
     Route: 048
     Dates: start: 20060616, end: 20061107
  3. NEORAL [Suspect]
     Indication: RENAL TRANSPLANT
     Dosage: 175 MG, BID
     Route: 048
     Dates: start: 20060615

REACTIONS (12)
  - ABSCESS [None]
  - ABSCESS DRAINAGE [None]
  - ANAEMIA [None]
  - BLOOD CHOLESTEROL INCREASED [None]
  - BLOOD CREATININE INCREASED [None]
  - DIABETES MELLITUS [None]
  - KIDNEY TRANSPLANT REJECTION [None]
  - PROTEINURIA [None]
  - PYREXIA [None]
  - SERRATIA INFECTION [None]
  - THERAPEUTIC AGENT TOXICITY [None]
  - WOUND SECRETION [None]
